FAERS Safety Report 4907683-8 (Version None)
Quarter: 2006Q1

REPORT INFORMATION
  Report Type: 
  Country: None (occurrence: None)
  Receive Date: 20060210
  Receipt Date: 20060130
  Transmission Date: 20060701
  Serious: Yes (Hospitalization)
  Sender: FDA-Public Use
  Company Number: IL-MERCK-0601ISR00039

PATIENT
  Age: 76 Year
  Sex: Female

DRUGS (3)
  1. FOSAMAX [Suspect]
     Indication: OSTEOPOROSIS
     Route: 048
     Dates: end: 20060107
  2. FOSAMAX [Suspect]
     Route: 048
     Dates: start: 19970101
  3. ROFECOXIB [Concomitant]
     Indication: PAIN IN EXTREMITY
     Route: 048
     Dates: start: 20010101

REACTIONS (2)
  - OESOPHAGEAL ULCER [None]
  - PEPTIC ULCER [None]
